FAERS Safety Report 8296809-7 (Version None)
Quarter: 2012Q2

REPORT INFORMATION
  Report Type: 
  Country: None (occurrence: None)
  Receive Date: 20120419
  Receipt Date: 20120109
  Transmission Date: 20120825
  Serious: No
  Sender: FDA-Public Use
  Company Number: US-ASTRAZENECA-2012SE00582

PATIENT
  Age: 53 Year
  Sex: Female

DRUGS (6)
  1. SEROQUEL XR [Suspect]
     Indication: BIPOLAR DISORDER
     Route: 048
  2. SEROQUEL XR [Suspect]
     Indication: MANIA
     Route: 048
  3. NEXIUM [Suspect]
     Route: 048
  4. SEROQUEL XR [Suspect]
     Route: 048
  5. SEROQUEL XR [Suspect]
     Route: 048
  6. LEXAPRO [Concomitant]

REACTIONS (5)
  - ARTHRITIS [None]
  - AFFECT LABILITY [None]
  - DRUG DOSE OMISSION [None]
  - BACK DISORDER [None]
  - MENTAL DISORDER [None]
